FAERS Safety Report 4634503-1 (Version None)
Quarter: 2005Q2

REPORT INFORMATION
  Report Type: 
  Country: None (occurrence: None)
  Receive Date: 20050413
  Receipt Date: 20041021
  Transmission Date: 20051028
  Serious: Yes (Hospitalization)
  Sender: FDA-Public Use
  Company Number: DE-MERCK-0410DEU00632

PATIENT
  Age: 61 Year
  Sex: Female
  Weight: 70 kg

DRUGS (6)
  1. VIOXX [Suspect]
     Indication: POLYARTHRITIS
     Route: 048
     Dates: start: 20040501, end: 20040615
  2. VIOXX [Suspect]
     Route: 048
     Dates: start: 20040730
  3. VIOXX [Suspect]
     Indication: JOINT INJURY
     Route: 048
     Dates: start: 20040501, end: 20040615
  4. VIOXX [Suspect]
     Route: 048
     Dates: start: 20040730
  5. IBUPROFEN [Concomitant]
     Indication: ARTHRALGIA
     Route: 048
     Dates: start: 20040601, end: 20040606
  6. IBUPROFEN [Concomitant]
     Indication: JOINT INJURY
     Route: 048
     Dates: start: 20040601, end: 20040606

REACTIONS (4)
  - DIZZINESS [None]
  - DRUG INEFFECTIVE [None]
  - PULMONARY EMBOLISM [None]
  - THROMBOSIS [None]
